FAERS Safety Report 19442657 (Version 1)
Quarter: 2021Q2

REPORT INFORMATION
  Report Type: Spontaneous
  Country: US (occurrence: US)
  Receive Date: 20210621
  Receipt Date: 20210621
  Transmission Date: 20210717
  Serious: No
  Sender: FDA-Public Use
  Company Number: US-ACORDA-ACO_169073_2021

PATIENT
  Sex: Male

DRUGS (1)
  1. INBRIJA [Suspect]
     Active Substance: LEVODOPA
     Indication: PRODUCT USED FOR UNKNOWN INDICATION
     Dosage: UNK
     Route: 065

REACTIONS (7)
  - Device delivery system issue [Unknown]
  - Product physical issue [Unknown]
  - Device issue [Unknown]
  - Drug ineffective [Unknown]
  - Ill-defined disorder [Unknown]
  - Product residue present [Unknown]
  - Device occlusion [Unknown]
